FAERS Safety Report 6803541-2 (Version None)
Quarter: 2010Q2

REPORT INFORMATION
  Report Type: 
  Country: None (occurrence: None)
  Receive Date: 20100628
  Receipt Date: 20100622
  Transmission Date: 20101027
  Serious: Yes (Hospitalization)
  Sender: FDA-Public Use
  Company Number: JP-MERCK-1006USA03849

PATIENT
  Age: 61 Year
  Sex: Female

DRUGS (2)
  1. JANUVIA [Suspect]
     Indication: TYPE 2 DIABETES MELLITUS
     Route: 048
     Dates: start: 20100510, end: 20100607
  2. COZAAR [Suspect]
     Indication: NEPHROPATHY
     Route: 048
     Dates: start: 20100521, end: 20100607

REACTIONS (1)
  - LIVER DISORDER [None]
